FAERS Safety Report 9317308 (Version 2)
Quarter: 2013Q3

REPORT INFORMATION
  Report Type: Spontaneous
  Country: US (occurrence: None)
  Receive Date: 20130524
  Receipt Date: 20130705
  Transmission Date: 20140515
  Serious: Yes (Death, Hospitalization)
  Sender: FDA-Public Use
  Company Number: QSC-2013-0140

PATIENT
  Age: 72 Year
  Sex: Female

DRUGS (10)
  1. ADRENOCORTICOTROPIC HORMONE [Suspect]
     Indication: NEPHROTIC SYNDROME
     Dosage: 80 UNITS, BID, SUBCUTANEOUS
     Route: 058
     Dates: start: 201302, end: 201304
  2. FUROSEMIDE (FUROSEMIDE) [Concomitant]
  3. CARVEDILOL (CARVEDILOL) [Concomitant]
  4. ISISORBIDE DINITRATE (ISISORBIDE DINITRATE) [Concomitant]
  5. VITAMIN D NOS (VITAMIN D NOS) [Concomitant]
  6. TYLENOL WITH CODEIN #3 (CAFFEINE, CODEINE PHOSPHATE, PARACETAMOL) [Concomitant]
  7. FISH OIL (FISH OIL) [Concomitant]
  8. FENOFIBRATE 9FENOFIBRATE) [Concomitant]
  9. ALLOPURINOL [Concomitant]
  10. THYROID (THYROID) [Concomitant]

REACTIONS (9)
  - Pancytopenia [None]
  - Peritonitis [None]
  - Acute respiratory failure [None]
  - Lower gastrointestinal haemorrhage [None]
  - Oedema peripheral [None]
  - Heart rate irregular [None]
  - Oedema [None]
  - Defaecation urgency [None]
  - Sepsis [None]
